FAERS Safety Report 17358366 (Version 4)
Quarter: 2021Q1

REPORT INFORMATION
  Report Type: Other
  Country: US (occurrence: US)
  Receive Date: 20200201
  Receipt Date: 20210207
  Transmission Date: 20210419
  Serious: Yes (Hospitalization, Other)
  Sender: FDA-Public Use
  Company Number: US-ROCHE-2531328

PATIENT
  Sex: Female
  Weight: 65.83 kg

DRUGS (9)
  1. OCREVUS [Suspect]
     Active Substance: OCRELIZUMAB
     Indication: RELAPSING-REMITTING MULTIPLE SCLEROSIS
     Dosage: NEXT DATES OF ADMINISTRATION: 01/FEB/2019, 01/AUG/2019?ONGOING: YES
     Route: 042
     Dates: start: 201708
  2. BACLOFEN. [Concomitant]
     Active Substance: BACLOFEN
     Indication: PAIN
     Dosage: STARTED 5 YEARS AGO
     Route: 048
  3. CYCLOBENZAPRINE. [Concomitant]
     Active Substance: CYCLOBENZAPRINE
     Indication: ARTHRALGIA
     Dosage: STARTED ABOUT 2 YEARS AGO
     Route: 048
  4. METHYLPHENIDATE. [Concomitant]
     Active Substance: METHYLPHENIDATE
     Indication: FATIGUE
     Dosage: STARTED 3 YRS AGO, BUT WAS STOPPED OVER A YEAR AGO
     Route: 048
  5. BACLOFEN. [Concomitant]
     Active Substance: BACLOFEN
     Indication: MUSCLE SPASTICITY
     Dosage: STARTED PRIOR TO OCREVUS
     Route: 048
  6. BENADRYL [Concomitant]
     Active Substance: DIPHENHYDRAMINE HYDROCHLORIDE
     Dosage: STARTED PRIOR TO OCREVUS
  7. TYLENOL PM [Concomitant]
     Active Substance: ACETAMINOPHEN\DIPHENHYDRAMINE
  8. GABAPENTIN. [Concomitant]
     Active Substance: GABAPENTIN
     Indication: PAIN IN EXTREMITY
     Dosage: STARTED 5 YEARS AGO
     Route: 048
  9. OCREVUS [Suspect]
     Active Substance: OCRELIZUMAB
     Route: 042

REACTIONS (12)
  - Urinary tract infection [Recovered/Resolved]
  - Bladder hypertrophy [Not Recovered/Not Resolved]
  - Urinary retention [Recovered/Resolved]
  - Off label use [Unknown]
  - Sciatica [Not Recovered/Not Resolved]
  - Intentional product misuse [Unknown]
  - Arthralgia [Recovered/Resolved]
  - Fungal infection [Recovered/Resolved]
  - Decubitus ulcer [Not Recovered/Not Resolved]
  - Pain in extremity [Recovered/Resolved]
  - Pain [Not Recovered/Not Resolved]
  - Multiple sclerosis relapse [Not Recovered/Not Resolved]

NARRATIVE: CASE EVENT DATE: 2019
